FAERS Safety Report 8454178-3 (Version None)
Quarter: 2012Q2

REPORT INFORMATION
  Report Type: 
  Country: None (occurrence: None)
  Receive Date: 20120620
  Receipt Date: 20120612
  Transmission Date: 20120825
  Serious: Yes (Other)
  Sender: FDA-Public Use
  Company Number: AU-ROCHE-1060844

PATIENT
  Sex: Female

DRUGS (1)
  1. ACTEMRA [Suspect]
     Indication: RHEUMATOID ARTHRITIS
     Route: 065
     Dates: start: 20120319

REACTIONS (5)
  - PAIN [None]
  - MALAISE [None]
  - CYSTITIS [None]
  - SKIN EXFOLIATION [None]
  - SKIN BURNING SENSATION [None]
